FAERS Safety Report 5706904-1 (Version None)
Quarter: 2008Q2

REPORT INFORMATION
  Report Type: 
  Country: None (occurrence: None)
  Receive Date: 20080416
  Receipt Date: 20080406
  Transmission Date: 20081010
  Serious: Yes (Hospitalization, Other)
  Sender: FDA-Public Use
  Company Number: US-ELI_LILLY_AND_COMPANY-US200803006311

PATIENT
  Age: 60 Year
  Sex: Male
  Weight: 70.295 kg

DRUGS (1)
  1. BYETTA [Suspect]
     Dosage: UNK, UNKNOWN
     Route: 065
     Dates: start: 20070101

REACTIONS (2)
  - PANCREATIC CYST [None]
  - WEIGHT DECREASED [None]
